FAERS Safety Report 21653715 (Version 3)
Quarter: 2023Q2

REPORT INFORMATION
  Report Type: Report from Study
  Country: US (occurrence: US)
  Receive Date: 20221129
  Receipt Date: 20230506
  Transmission Date: 20230722
  Serious: Yes (Other)
  Sender: FDA-Public Use
  Company Number: US-ABBVIE-4170051

PATIENT
  Sex: Female

DRUGS (2)
  1. HUMIRA [Suspect]
     Active Substance: ADALIMUMAB
     Indication: Crohn^s disease
     Route: 058
  2. MODERNA COVID-19 VACCINE [Concomitant]
     Active Substance: ELASOMERAN
     Indication: COVID-19 immunisation
     Dosage: ONE IN ONCE
     Route: 030

REACTIONS (10)
  - Tachycardia [Unknown]
  - Road traffic accident [Recovering/Resolving]
  - Respiratory failure [Unknown]
  - Spinal compression fracture [Unknown]
  - Spinal fracture [Unknown]
  - Haemorrhage [Unknown]
  - Sternal fracture [Unknown]
  - Thoracic vertebral fracture [Unknown]
  - Spinal fusion surgery [Unknown]
  - Pneumonia [Unknown]
